FAERS Safety Report 10206741 (Version 1)
Quarter: 2014Q2

REPORT INFORMATION
  Report Type: Spontaneous
  Country: US (occurrence: None)
  Receive Date: 20140527
  Receipt Date: 20140527
  Transmission Date: 20141212
  Serious: Yes (Life-Threatening, Hospitalization)
  Sender: FDA-Public Use
  Company Number: None

PATIENT
  Age: 5 Year
  Sex: Male
  Weight: 36 kg

DRUGS (5)
  1. TOCILIZUMAB [Suspect]
     Indication: JUVENILE IDIOPATHIC ARTHRITIS
     Dosage: 280 MG EVERY 2 WEEKS.
     Dates: start: 20140311, end: 20140423
  2. MELOXICAM [Concomitant]
  3. CALCIUM CARBONATE [Concomitant]
  4. RANITIDINE [Concomitant]
  5. CORTICOSTEROIDS [Concomitant]

REACTIONS (3)
  - Pneumonia [None]
  - Sepsis [None]
  - Histiocytosis haematophagic [None]
